FAERS Safety Report 7927893-5 (Version None)
Quarter: 2011Q4

REPORT INFORMATION
  Report Type: 
  Country: None (occurrence: None)
  Receive Date: 20111118
  Receipt Date: 20111104
  Transmission Date: 20120403
  Serious: Yes (Hospitalization, Other)
  Sender: FDA-Public Use
  Company Number: US-ACTELION-A-CH2011-56949

PATIENT
  Age: 28 Year
  Sex: Female

DRUGS (5)
  1. ENOXAPARIN [Concomitant]
  2. OXYGEN [Concomitant]
  3. EPOPROSTENOL SODIUM [Suspect]
     Indication: PULMONARY ARTERIAL HYPERTENSION
     Dosage: 6 NG/KG, PER MIN
     Route: 042
  4. EPOPROSTENOL SODIUM [Suspect]
     Dosage: 26 NG/KG, PER MIN
     Route: 042
  5. EPOPROSTENOL SODIUM [Suspect]
     Dosage: UNK , UNK
     Route: 042

REACTIONS (20)
  - VASCULAR RESISTANCE PULMONARY INCREASED [None]
  - EPIDURAL ANAESTHESIA [None]
  - FOETAL CARDIAC DISORDER [None]
  - HYPOXIA [None]
  - DYSPNOEA [None]
  - NAUSEA [None]
  - HAEMOPTYSIS [None]
  - FEMALE STERILISATION [None]
  - VENTRICULAR TACHYCARDIA [None]
  - FOETAL GROWTH RESTRICTION [None]
  - PULMONARY OEDEMA [None]
  - PREMATURE BABY [None]
  - CAESAREAN SECTION [None]
  - PREMATURE LABOUR [None]
  - COMPLICATION OF PREGNANCY [None]
  - PROTEINURIA [None]
  - TRANSFUSION [None]
  - SYSTEMIC-PULMONARY ARTERY SHUNT [None]
  - PREMATURE DELIVERY [None]
  - HYPERTENSION [None]
